FAERS Safety Report 20934282 (Version 1)
Quarter: 2022Q2

REPORT INFORMATION
  Report Type: Spontaneous
  Country: US (occurrence: US)
  Receive Date: 20220608
  Receipt Date: 20220608
  Transmission Date: 20220721
  Serious: No
  Sender: FDA-Public Use
  Company Number: US-BRISTOL-MYERS SQUIBB COMPANY-2022-040191

PATIENT
  Age: 68 Year
  Sex: Male

DRUGS (1)
  1. REVLIMID [Suspect]
     Active Substance: LENALIDOMIDE
     Indication: Hypokalaemia
     Dosage: 1 CAPSULE (15 MILLIGRAM) DAILY FOR 3 WEEKS THEN 7 DAYS OFF
     Route: 048

REACTIONS (1)
  - Intentional product use issue [Unknown]
